FAERS Safety Report 10602985 (Version 2)
Quarter: 2014Q4

REPORT INFORMATION
  Report Type: Spontaneous
  Country: JP (occurrence: JP)
  Receive Date: 20141124
  Receipt Date: 20141208
  Transmission Date: 20150529
  Serious: Yes (Other)
  Sender: FDA-Public Use
  Company Number: JP-009507513-1411JPN010783

PATIENT
  Age: 42 Year
  Sex: Male

DRUGS (14)
  1. DEXART [Suspect]
     Active Substance: DEXAMETHASONE SODIUM PHOSPHATE
     Indication: T-CELL LYMPHOMA
     Dosage: 40 MG/M2, UNK (DIVIDED DOSE FREQUENCY UNKNOWN)
  2. IFOMIDE [Concomitant]
     Active Substance: IFOSFAMIDE
     Indication: T-CELL LYMPHOMA
     Dosage: DAILY DOSAGE UNKNOWN; TOTAL DOSE OF 2 G/M2
     Route: 042
  3. IFOMIDE [Concomitant]
     Active Substance: IFOSFAMIDE
     Dosage: DAILY DOSAGE UNKNOWN; TOTAL DOSE OF 2 G/M2
     Route: 042
  4. LEUNASE [Concomitant]
     Active Substance: ASPARAGINASE
     Indication: T-CELL LYMPHOMA
     Dosage: DAILY DOSAGE UNKNOWN; TOTAL DOSE OF 24.000 UNITS/M2
     Route: 051
  5. EMTRICITABINE [Concomitant]
     Active Substance: EMTRICITABINE
     Indication: T-CELL LYMPHOMA
     Dosage: DAILY DOSAGE UNKNOWN
     Route: 048
  6. ISENTRESS [Concomitant]
     Active Substance: RALTEGRAVIR POTASSIUM
     Indication: T-CELL LYMPHOMA
     Dosage: DAILY DOSAGE UNKNOWN
     Route: 048
  7. ETOPOSIDE. [Concomitant]
     Active Substance: ETOPOSIDE
     Dosage: DAILY DOSAGE UNKNOWN
  8. HORMONES (UNSPECIFIED) [Concomitant]
     Active Substance: UNSPECIFIED INGREDIENT
     Indication: T-CELL LYMPHOMA
     Dosage: DAILY DOSAGE UNKNOWN
  9. METHOTREXATE [Concomitant]
     Active Substance: METHOTREXATE
     Indication: T-CELL LYMPHOMA
     Dosage: DAILY DOSAGE UNKNOWN
  10. THERAPY UNSPECIFIED [Suspect]
     Active Substance: UNSPECIFIED INGREDIENT
     Dosage: UNK
  11. TENOFOVIR DISOPROXIL FUMARATE [Concomitant]
     Active Substance: TENOFOVIR DISOPROXIL FUMARATE
     Indication: T-CELL LYMPHOMA
     Dosage: DAILY DOSAGE UNKNOWN
     Route: 048
  12. ETOPOSIDE. [Concomitant]
     Active Substance: ETOPOSIDE
     Indication: T-CELL LYMPHOMA
     Dosage: DAILY DOSAGE UNKNOWN
  13. DEXART [Suspect]
     Active Substance: DEXAMETHASONE SODIUM PHOSPHATE
     Dosage: 8 MG/M2, UNK (DIVIDED DOSE FREQUENCY UNKNOWN)
  14. CARBOPLATIN. [Concomitant]
     Active Substance: CARBOPLATIN
     Indication: T-CELL LYMPHOMA
     Dosage: DAILY DOSAGE UNKNOWN
     Route: 042

REACTIONS (2)
  - Metastases to central nervous system [Recovered/Resolved]
  - Opportunistic infection [Unknown]
